FAERS Safety Report 9526554 (Version 4)
Quarter: 2014Q1

REPORT INFORMATION
  Report Type: Spontaneous
  Country: US (occurrence: US)
  Receive Date: 20130916
  Receipt Date: 20140321
  Transmission Date: 20141002
  Serious: Yes (Death, Hospitalization, Other)
  Sender: FDA-Public Use
  Company Number: US-PFIZER INC-2013130035

PATIENT
  Age: 43 Year
  Sex: Male

DRUGS (6)
  1. DILANTIN-125 [Suspect]
     Indication: CONVULSION
     Dosage: 200 MG, 2X/DAY
     Dates: start: 20020406
  2. DILANTIN KAPSEAL [Suspect]
     Indication: CONVULSION
     Dosage: 100 MG, 3X/DAY
     Route: 048
     Dates: start: 20020412
  3. DILANTIN [Suspect]
     Indication: CONVULSION
     Dosage: 100 MG, 3X/DAY
     Route: 042
     Dates: start: 20020419, end: 20020419
  4. DILANTIN [Suspect]
     Indication: CONVULSION
     Dosage: 75 MG (50 MG CHEWABLE TABLETS, ONE AND HALF TABLET), 3X/DAY
     Route: 048
     Dates: start: 20020420, end: 20020422
  5. DILANTIN [Suspect]
     Dosage: 50 MG, 2X/DAY
     Route: 048
     Dates: start: 20020423, end: 20020424
  6. DILANTIN [Suspect]
     Dosage: 50 MG, 1X/DAY
     Route: 048
     Dates: start: 20020425, end: 20020426

REACTIONS (2)
  - Stevens-Johnson syndrome [Fatal]
  - Toxic epidermal necrolysis [Unknown]
